FAERS Safety Report 26079519 (Version 1)
Quarter: 2025Q4

REPORT INFORMATION
  Report Type: Spontaneous
  Country: US (occurrence: US)
  Receive Date: 20251123
  Receipt Date: 20251123
  Transmission Date: 20260118
  Serious: No
  Sender: DR REDDYS
  Company Number: US-DRL-USA-USA/2025/11/016673

PATIENT
  Age: 36 Year
  Sex: Female

DRUGS (10)
  1. CITALOPRAM [Suspect]
     Active Substance: CITALOPRAM
     Indication: Major depression
  2. LAMOTRIGINE [Suspect]
     Active Substance: LAMOTRIGINE
     Indication: Major depression
  3. FLUOXETINE [Suspect]
     Active Substance: FLUOXETINE HYDROCHLORIDE
     Indication: Major depression
  4. METHYLPHENIDATE [Suspect]
     Active Substance: METHYLPHENIDATE
     Indication: Major depression
  5. SERTRALINE [Concomitant]
     Active Substance: SERTRALINE HYDROCHLORIDE
     Indication: Major depression
  6. ALPRAZOLAM [Concomitant]
     Active Substance: ALPRAZOLAM
     Indication: Major depression
  7. ARIPIPRAZOLE [Concomitant]
     Active Substance: ARIPIPRAZOLE
     Indication: Major depression
  8. DOXEPIN [Concomitant]
     Active Substance: DOXEPIN
     Indication: Major depression
  9. LORAZEPAM [Concomitant]
     Active Substance: LORAZEPAM
     Indication: Major depression
  10. MIRTAZAPINE [Concomitant]
     Active Substance: MIRTAZAPINE
     Indication: Major depression

REACTIONS (2)
  - Drug ineffective [Unknown]
  - Off label use [Unknown]
